FAERS Safety Report 12830936 (Version 1)
Quarter: 2016Q4

REPORT INFORMATION
  Report Type: Report from Study
  Country: IT (occurrence: IT)
  Receive Date: 20161007
  Receipt Date: 20161007
  Transmission Date: 20170207
  Serious: Yes (Death)
  Sender: FDA-Public Use
  Company Number: IT-PFIZER INC-2016466733

PATIENT

DRUGS (5)
  1. MYOCET [Suspect]
     Active Substance: DOXORUBICIN
     Indication: SPLENIC MARGINAL ZONE LYMPHOMA
     Dosage: 50 MG/M2, CYCLIC
     Route: 042
  2. CYCLOPHOSPHAMIDE. [Suspect]
     Active Substance: CYCLOPHOSPHAMIDE
     Indication: SPLENIC MARGINAL ZONE LYMPHOMA
     Dosage: 750 MG/M2, CYCLIC (DAY 1)
     Route: 042
  3. VINCRISTINE SULFATE. [Suspect]
     Active Substance: VINCRISTINE SULFATE
     Indication: SPLENIC MARGINAL ZONE LYMPHOMA
     Dosage: 1.4 MG/M2, CYCLIC
     Route: 042
  4. PREDNISONE. [Suspect]
     Active Substance: PREDNISONE
     Indication: SPLENIC MARGINAL ZONE LYMPHOMA
     Dosage: 60 MG/M2, CYCLIC (DAYS 1-5)
     Route: 048
  5. MABTHERA [Suspect]
     Active Substance: RITUXIMAB
     Indication: SPLENIC MARGINAL ZONE LYMPHOMA
     Dosage: 375 MG/M2, CYCLIC (DAY 8 OF THE FIRST CYCLE AND DAY 1 FOR SUBSEQUENT CYCLES)
     Route: 042

REACTIONS (1)
  - Pneumonia [Fatal]
